FAERS Safety Report 4985767-6 (Version None)
Quarter: 2006Q2

REPORT INFORMATION
  Report Type: 
  Country: None (occurrence: None)
  Receive Date: 20060421
  Receipt Date: 20060410
  Transmission Date: 20061013
  Serious: Yes (Hospitalization)
  Sender: FDA-Public Use
  Company Number: 2006050287

PATIENT
  Age: 61 Year
  Sex: Female
  Weight: 78.8 kg

DRUGS (3)
  1. SUTENT [Suspect]
     Indication: GASTROINTESTINAL STROMAL TUMOUR
     Dosage: 50 MG (50 MG, 1 IN 1 D), ORAL
     Route: 048
     Dates: start: 20050801
  2. CENTYL MITE W/POTASSIUM CHLORIDE (BENDROFLUMETHIAZIDE, POTASSIUM CHLOR [Concomitant]
  3. METOPROLOL SUCCINATE [Concomitant]

REACTIONS (2)
  - CARDIOTOXICITY [None]
  - OEDEMA [None]
